FAERS Safety Report 12728939 (Version 2)
Quarter: 2016Q3

REPORT INFORMATION
  Report Type: Report from Study
  Country: BR (occurrence: BR)
  Receive Date: 20160909
  Receipt Date: 20160927
  Transmission Date: 20161109
  Serious: Yes (Other)
  Sender: FDA-Public Use
  Company Number: BR-JNJFOC-20160728453

PATIENT
  Sex: Female
  Weight: 95 kg

DRUGS (3)
  1. SIMPONI [Suspect]
     Active Substance: GOLIMUMAB
     Indication: RHEUMATOID ARTHRITIS
     Route: 058
     Dates: start: 20160525
  2. TECNOMET [Concomitant]
     Active Substance: METHOTREXATE
     Route: 065
  3. FLUOXETINE [Concomitant]
     Active Substance: FLUOXETINE HYDROCHLORIDE
     Route: 065

REACTIONS (4)
  - Nodule [Unknown]
  - Blood pressure fluctuation [Unknown]
  - Haematoma [Unknown]
  - Influenza [Unknown]

NARRATIVE: CASE EVENT DATE: 2016
